FAERS Safety Report 5827386-5 (Version None)
Quarter: 2008Q3

REPORT INFORMATION
  Report Type: 
  Country: None (occurrence: None)
  Receive Date: 20080730
  Receipt Date: 20080728
  Transmission Date: 20090109
  Serious: Yes (Hospitalization, Other)
  Sender: FDA-Public Use
  Company Number: CO-BRISTOL-MYERS SQUIBB COMPANY-14280499

PATIENT
  Age: 56 Year
  Sex: Female

DRUGS (6)
  1. COUMADIN [Suspect]
     Indication: ANTICOAGULANT THERAPY
     Dosage: 18-JUL-2008, 21-JUL-2008, 22-JUL-2008 WARFARIN SODIUM 5 MG/DAY,  23-JUL-2008 7.5 MG/DAY
  2. METOPROLOL TARTRATE [Concomitant]
     Route: 048
  3. SPIRONOLACTONE [Concomitant]
     Route: 048
  4. FUROSEMIDE [Concomitant]
     Route: 048
  5. ASPIRIN [Concomitant]
     Route: 048
  6. ENOXAPARIN SODIUM [Concomitant]
     Route: 058

REACTIONS (3)
  - DRUG EFFECT DECREASED [None]
  - INTERNATIONAL NORMALISED RATIO FLUCTUATION [None]
  - TRANSIENT ISCHAEMIC ATTACK [None]
